FAERS Safety Report 22596793 (Version 1)
Quarter: 2023Q2

REPORT INFORMATION
  Report Type: Spontaneous
  Country: US (occurrence: US)
  Receive Date: 20230613
  Receipt Date: 20230613
  Transmission Date: 20230721
  Serious: No
  Sender: FDA-Public Use
  Company Number: US-BAUSCH-BL-2023-008613

PATIENT
  Sex: Female

DRUGS (4)
  1. TRULANCE [Suspect]
     Active Substance: PLECANATIDE
     Indication: Constipation
     Dosage: 1 TABLET QD
     Route: 048
  2. TRULANCE [Suspect]
     Active Substance: PLECANATIDE
     Dosage: 1 TABLET QD
     Route: 048
     Dates: start: 2023, end: 2023
  3. GABAPENTIN [Concomitant]
     Active Substance: GABAPENTIN
     Indication: Product used for unknown indication
  4. MIRALAX [Concomitant]
     Active Substance: POLYETHYLENE GLYCOL 3350
     Indication: Constipation

REACTIONS (6)
  - Hyperhidrosis [Unknown]
  - Oral discomfort [Unknown]
  - Malaise [Unknown]
  - Abdominal distension [Not Recovered/Not Resolved]
  - Patient dissatisfaction with treatment [Unknown]
  - Extra dose administered [Unknown]

NARRATIVE: CASE EVENT DATE: 20230101
